FAERS Safety Report 8383246-X (Version None)
Quarter: 2012Q2

REPORT INFORMATION
  Report Type: 
  Country: None (occurrence: None)
  Receive Date: 20120522
  Receipt Date: 20120501
  Transmission Date: 20120825
  Serious: Yes (Death)
  Sender: FDA-Public Use
  Company Number: JP-2012-15100

PATIENT
  Age: 82 Year
  Sex: Male

DRUGS (4)
  1. SAMSCA [Suspect]
     Indication: CARDIAC FAILURE CHRONIC
     Dosage: ORAL
     Route: 048
  2. ALDACTONE [Suspect]
     Dosage: ORAL
     Route: 048
  3. DIURETICS (DIURETICS) [Suspect]
  4. LASIX [Suspect]

REACTIONS (2)
  - ANURIA [None]
  - RENAL FAILURE ACUTE [None]
